FAERS Safety Report 21160888 (Version 1)
Quarter: 2022Q3

REPORT INFORMATION
  Report Type: Spontaneous
  Country: US (occurrence: None)
  Receive Date: 20220801
  Receipt Date: 20220801
  Transmission Date: 20221027
  Serious: Yes (Life-Threatening, Hospitalization)
  Sender: FDA-Public Use
  Company Number: None

PATIENT
  Age: 45 Year
  Sex: Female
  Weight: 94 kg

DRUGS (1)
  1. GADOBENATE DIMEGLUMINE [Suspect]
     Active Substance: GADOBENATE DIMEGLUMINE
     Indication: Imaging procedure
     Dosage: FREQUENCY : ONCE;?
     Route: 042
     Dates: start: 20220729, end: 20220729

REACTIONS (6)
  - Urticaria [None]
  - Vomiting [None]
  - Throat tightness [None]
  - Dyspnoea [None]
  - Nausea [None]
  - Contrast media reaction [None]

NARRATIVE: CASE EVENT DATE: 20220729
